FAERS Safety Report 23729096 (Version 1)
Quarter: 2024Q2

REPORT INFORMATION
  Report Type: Spontaneous
  Country: NL (occurrence: NL)
  Receive Date: 20240410
  Receipt Date: 20240410
  Transmission Date: 20240716
  Serious: Yes (Other)
  Sender: FDA-Public Use
  Company Number: None

PATIENT
  Age: 35 Year
  Sex: Male
  Weight: 102 kg

DRUGS (6)
  1. FLUVOXAMINE [Suspect]
     Active Substance: FLUVOXAMINE
     Indication: Product used for unknown indication
     Dosage: 25 MILLIGRAM, QD (1 DAILY 0.5)
     Route: 065
     Dates: start: 20240129, end: 20240209
  2. ZUCLOPENTHIXOL [Concomitant]
     Active Substance: ZUCLOPENTHIXOL
     Dosage: 10 MILLIGRAM
     Route: 065
  3. GLICLAZIDE [Concomitant]
     Active Substance: GLICLAZIDE
     Dosage: 30 MILLIGRAM (CONTROLLED RELEASE TABLET)
     Route: 065
  4. METOPROLOL SUCCINATE [Concomitant]
     Active Substance: METOPROLOL SUCCINATE
     Dosage: 50 MILLIGRAM (CONTROLLED RELEASE TABLET)
     Route: 065
  5. CLOZAPINE [Concomitant]
     Active Substance: CLOZAPINE
     Dosage: UNK
     Route: 065
  6. GLUCIENT SR [Concomitant]
     Dosage: 1000 MILLIGRAM (CONTROLLED RELEASE TABLET)
     Route: 065

REACTIONS (2)
  - Angioedema [Not Recovered/Not Resolved]
  - Erythema [Unknown]
